FAERS Safety Report 21360033 (Version 2)
Quarter: 2022Q4

REPORT INFORMATION
  Report Type: Report from Study
  Country: None (occurrence: US)
  Receive Date: 20220921
  Receipt Date: 20221005
  Transmission Date: 20230113
  Serious: Yes (Other)
  Sender: FDA-Public Use
  Company Number: US-AKCEA THERAPEUTICS, INC.-2022IS003435

PATIENT
  Age: 71 Year
  Sex: Male
  Weight: 109.09 kg

DRUGS (5)
  1. TEGSEDI [Suspect]
     Active Substance: INOTERSEN SODIUM
     Indication: Hereditary neuropathic amyloidosis
     Route: 058
     Dates: start: 20220608
  2. DEVICE [Suspect]
     Active Substance: DEVICE
  3. ATORVASTATIN [Suspect]
     Active Substance: ATORVASTATIN
     Route: 065
  4. ATORVASTATIN [Suspect]
     Active Substance: ATORVASTATIN
     Route: 065
  5. TEGSEDI [Suspect]
     Active Substance: INOTERSEN SODIUM
     Route: 058
     Dates: start: 20220711

REACTIONS (10)
  - Glomerular filtration rate decreased [Unknown]
  - Blood creatinine increased [Unknown]
  - Urine protein/creatinine ratio increased [Unknown]
  - Glucose urine present [Unknown]
  - White blood cells urine positive [Unknown]
  - Urine abnormality [Unknown]
  - Bacterial test positive [Unknown]
  - Myalgia [Unknown]
  - Arthralgia [Unknown]
  - Protein urine present [Unknown]

NARRATIVE: CASE EVENT DATE: 20220809
